FAERS Safety Report 24721772 (Version 1)
Quarter: 2024Q4

REPORT INFORMATION
  Report Type: Spontaneous
  Country: ES (occurrence: ES)
  Receive Date: 20241211
  Receipt Date: 20241211
  Transmission Date: 20250114
  Serious: Yes (Life-Threatening, Other)
  Sender: BAXTER
  Company Number: None

PATIENT
  Sex: Male

DRUGS (1)
  1. DEXTROSE\SODIUM CHLORIDE [Suspect]
     Active Substance: DEXTROSE\SODIUM CHLORIDE
     Dosage: UNSPECIFIED DOSE AND FREQUENCY (ADDITIONAL INFORMATION ON DRUG: GLUCOSE-SALINE SERUM IS NOT PRESCRIB
     Route: 042
     Dates: start: 20241123

REACTIONS (2)
  - Hyponatraemia [Unknown]
  - Medication error [Unknown]

NARRATIVE: CASE EVENT DATE: 20241123
